FAERS Safety Report 10023365 (Version 1)
Quarter: 2014Q1

REPORT INFORMATION
  Report Type: Spontaneous
  Country: US (occurrence: US)
  Receive Date: 20140320
  Receipt Date: 20140320
  Transmission Date: 20141002
  Serious: Yes (Death, Other)
  Sender: FDA-Public Use
  Company Number: US-AMGEN-USASP2014018803

PATIENT
  Age: 88 Year
  Sex: Male

DRUGS (1)
  1. VECTIBIX [Suspect]
     Indication: COLORECTAL CANCER
     Dosage: 400 MG, EVERY 2 WEEKS
     Route: 065
     Dates: start: 20120712

REACTIONS (2)
  - Lung neoplasm malignant [Unknown]
  - Acute respiratory failure [Fatal]
